FAERS Safety Report 9601605 (Version 3)
Quarter: 2013Q4

REPORT INFORMATION
  Report Type: Report from Study
  Country: CA (occurrence: CA)
  Receive Date: 20131007
  Receipt Date: 20131120
  Transmission Date: 20140711
  Serious: Yes (Hospitalization)
  Sender: FDA-Public Use
  Company Number: CA-ROCHE-1189032

PATIENT
  Age: 64 Year
  Sex: Female
  Weight: 73 kg

DRUGS (7)
  1. ACTEMRA [Suspect]
     Indication: RHEUMATOID ARTHRITIS
     Route: 042
     Dates: start: 20121016
  2. ACTEMRA [Suspect]
     Route: 042
     Dates: start: 20130528
  3. METFORMIN [Concomitant]
  4. ASA [Concomitant]
  5. METHOTREXATE [Concomitant]
  6. FOLIC ACID [Concomitant]
     Route: 065
  7. LIPITOR [Concomitant]

REACTIONS (3)
  - Loss of consciousness [Recovering/Resolving]
  - Arterial rupture [Recovering/Resolving]
  - Localised infection [Unknown]
